FAERS Safety Report 20325928 (Version 1)
Quarter: 2022Q1

REPORT INFORMATION
  Report Type: Spontaneous
  Country: US (occurrence: US)
  Receive Date: 20220112
  Receipt Date: 20220112
  Transmission Date: 20220423
  Serious: Yes (Hospitalization, Other)
  Sender: FDA-Public Use
  Company Number: US-CELLTRION INC.-2021US016068

PATIENT

DRUGS (7)
  1. TRUXIMA [Suspect]
     Active Substance: RITUXIMAB-ABBS
     Indication: Acute leukaemia
     Dosage: 375 MG/M2 (TOTAL DOSING 700MG), FIRST INFUSION
     Route: 042
     Dates: start: 20211109
  2. TRUXIMA [Suspect]
     Active Substance: RITUXIMAB-ABBS
     Indication: Lymphocytic leukaemia
     Dosage: 375 MG/M2 (TOTAL DOSING 700MG), FIRST INFUSION
     Route: 042
     Dates: start: 20211109
  3. TRUXIMA [Suspect]
     Active Substance: RITUXIMAB-ABBS
     Dosage: 375 MG/M2 (TOTAL DOSING 700MG), FIRST INFUSION
     Route: 042
     Dates: start: 20211109
  4. TRUXIMA [Suspect]
     Active Substance: RITUXIMAB-ABBS
     Dosage: 700 MG
     Dates: start: 20211120
  5. TRUXIMA [Suspect]
     Active Substance: RITUXIMAB-ABBS
     Dosage: 375 MG/M2 (TOTAL DOSING 700MG), LAST INFUSION
     Route: 042
     Dates: start: 20211206
  6. BENADRYL [Concomitant]
     Active Substance: DIPHENHYDRAMINE HYDROCHLORIDE
     Indication: Premedication
     Dosage: DOSING UNKNOWN
  7. TYLENOL [Concomitant]
     Active Substance: ACETAMINOPHEN
     Indication: Premedication
     Dosage: DOSING UNKNOWN

REACTIONS (5)
  - Malaise [Unknown]
  - Illness [Unknown]
  - Acute leukaemia [Unknown]
  - Lymphocytic leukaemia [Unknown]
  - Off label use [Unknown]

NARRATIVE: CASE EVENT DATE: 20211120
